FAERS Safety Report 4627134-0 (Version None)
Quarter: 2005Q2

REPORT INFORMATION
  Report Type: 
  Country: None (occurrence: None)
  Receive Date: 20050405
  Receipt Date: 20040402
  Transmission Date: 20051028
  Serious: Yes (Other)
  Sender: FDA-Public Use
  Company Number: US-GLAXOSMITHKLINE-A0506327A

PATIENT
  Sex: Male

DRUGS (2)
  1. PAXIL [Suspect]
     Indication: PANIC ATTACK
     Dosage: 40MG IN THE MORNING
     Route: 048
     Dates: start: 20010101
  2. XANAX [Concomitant]
     Indication: PANIC ATTACK
     Dosage: .5MG AS REQUIRED
     Route: 048
     Dates: start: 20010101

REACTIONS (11)
  - AGGRESSION [None]
  - ANGER [None]
  - CHEST DISCOMFORT [None]
  - CHEST PAIN [None]
  - DRUG WITHDRAWAL SYNDROME [None]
  - FATIGUE [None]
  - FEELING ABNORMAL [None]
  - HEADACHE [None]
  - HEART RATE INCREASED [None]
  - PANIC ATTACK [None]
  - SUICIDAL IDEATION [None]
